FAERS Safety Report 17303459 (Version 3)
Quarter: 2020Q1

REPORT INFORMATION
  Report Type: Report from Study
  Country: None (occurrence: US)
  Receive Date: 20200122
  Receipt Date: 20200324
  Transmission Date: 20200409
  Serious: Yes (Other)
  Sender: FDA-Public Use
  Company Number: US-ABBVIE-20P-163-3243073-00

PATIENT
  Sex: Female

DRUGS (2)
  1. RINVOQ [Suspect]
     Active Substance: UPADACITINIB
     Indication: RHEUMATOID ARTHRITIS
     Route: 065
     Dates: end: 201910
  2. RINVOQ [Suspect]
     Active Substance: UPADACITINIB
     Route: 065
     Dates: start: 201911

REACTIONS (2)
  - Sinus disorder [Unknown]
  - Skin cancer [Unknown]
